FAERS Safety Report 7332248-0 (Version None)
Quarter: 2011Q1

REPORT INFORMATION
  Report Type: 
  Country: None (occurrence: None)
  Receive Date: 20110222
  Receipt Date: 20110207
  Transmission Date: 20110831
  Serious: Yes (Death)
  Sender: FDA-Public Use
  Company Number: DE-001501

PATIENT
  Sex: Male

DRUGS (10)
  1. VOLTAREN [Concomitant]
  2. NOVALGIN [Concomitant]
  3. ACETYLCYSTEINE [Concomitant]
  4. SALBUTAMOL [Concomitant]
  5. MUCOSOLVAN [Concomitant]
  6. DICLOFENAC DIETHYLAMINE [Concomitant]
  7. NAGLAZYME [Suspect]
     Indication: MUCOPOLYSACCHARIDOSIS VI
     Dosage: INTRAVENOUS DRIP
     Route: 041
     Dates: start: 20030915
  8. FENISTIL [Concomitant]
  9. MULMICORT [Concomitant]
  10. MORPHINE [Concomitant]

REACTIONS (3)
  - GENERAL PHYSICAL HEALTH DETERIORATION [None]
  - FATIGUE [None]
  - ABDOMINAL PAIN [None]
